FAERS Safety Report 13700949 (Version 1)
Quarter: 2017Q2

REPORT INFORMATION
  Report Type: Spontaneous
  Country: US (occurrence: US)
  Receive Date: 20170628
  Receipt Date: 20170628
  Transmission Date: 20170830
  Serious: Yes (Hospitalization, Other)
  Sender: FDA-Public Use
  Company Number: None

PATIENT
  Sex: Male

DRUGS (4)
  1. DIAZOXIDE 50 MG/ML [Suspect]
     Active Substance: DIAZOXIDE
     Indication: HYPERINSULINISM
     Dates: start: 20160224, end: 20160307
  2. CHLOROTHIAZIDE. [Suspect]
     Active Substance: CHLOROTHIAZIDE
  3. FAT EMULSION NOS [Concomitant]
     Active Substance: EGG PHOSPHOLIPIDS\SAFFLOWER OIL\SOYBEAN OIL
  4. FUROSEMIDE. [Concomitant]
     Active Substance: FUROSEMIDE

REACTIONS (8)
  - Hyperglycaemia [None]
  - Fluid overload [None]
  - Dyspnoea [None]
  - Hypercapnia [None]
  - Atelectasis [None]
  - Pulmonary oedema [None]
  - Chest X-ray abnormal [None]
  - Use of accessory respiratory muscles [None]
